FAERS Safety Report 10257170 (Version 1)
Quarter: 2014Q2

REPORT INFORMATION
  Report Type: Spontaneous
  Country: US (occurrence: None)
  Receive Date: 20140623
  Receipt Date: 20140623
  Transmission Date: 20141212
  Serious: Yes (Other)
  Sender: FDA-Public Use
  Company Number: None

PATIENT
  Age: 33 Year
  Sex: Male
  Weight: 96.16 kg

DRUGS (6)
  1. ENBREL [Suspect]
     Indication: RHEUMATOID ARTHRITIS
     Dosage: INJECTABLE, Q WK, SUBCUTANEOUS 057
     Dates: start: 20140530
  2. LEFLUNOMIDE [Concomitant]
  3. LORIAB [Concomitant]
  4. ALLOPURINOL [Concomitant]
  5. CYCLOBENZAPRINE [Concomitant]
  6. VITAMIN D [Concomitant]

REACTIONS (2)
  - Nausea [None]
  - Temperature intolerance [None]
